FAERS Safety Report 7001260-3 (Version None)
Quarter: 2010Q3

REPORT INFORMATION
  Report Type: 
  Country: None (occurrence: None)
  Receive Date: 20100920
  Receipt Date: 20100916
  Transmission Date: 20110219
  Serious: Yes (Death)
  Sender: FDA-Public Use
  Company Number: PHHY2010US61945

PATIENT
  Sex: Female
  Weight: 72.12 kg

DRUGS (1)
  1. EXJADE [Suspect]
     Indication: NEOPLASM
     Dosage: 1500 MG/DAY
     Route: 048
     Dates: start: 20100805

REACTIONS (1)
  - DEATH [None]
